FAERS Safety Report 13239897 (Version 1)
Quarter: 2017Q1

REPORT INFORMATION
  Report Type: Spontaneous
  Country: US (occurrence: US)
  Receive Date: 20170216
  Receipt Date: 20170216
  Transmission Date: 20170428
  Serious: No
  Sender: FDA-Public Use
  Company Number: US-PFIZER INC-2017062406

PATIENT
  Sex: Female

DRUGS (1)
  1. XELJANZ [Suspect]
     Active Substance: TOFACITINIB CITRATE
     Dosage: 5 MG, DAILY

REACTIONS (11)
  - Irritability [Unknown]
  - Pain in extremity [Recovered/Resolved]
  - Tendon disorder [Unknown]
  - Decreased vibratory sense [Unknown]
  - Musculoskeletal discomfort [Recovering/Resolving]
  - Breath sounds abnormal [Unknown]
  - Tenderness [Recovered/Resolved]
  - Swelling [Recovered/Resolved]
  - Joint lock [Unknown]
  - Decreased appetite [Unknown]
  - Off label use [Unknown]
